FAERS Safety Report 16610046 (Version 1)
Quarter: 2019Q3

REPORT INFORMATION
  Report Type: Spontaneous
  Country: IT (occurrence: IT)
  Receive Date: 20190722
  Receipt Date: 20190722
  Transmission Date: 20191004
  Serious: Yes (Hospitalization, Disabling)
  Sender: FDA-Public Use
  Company Number: IT-GUERBET-IT-20190126

PATIENT
  Age: 41 Year
  Sex: Male

DRUGS (2)
  1. GLUBRAN 2 [Concomitant]
     Active Substance: DEVICE
     Indication: THERAPEUTIC EMBOLISATION
     Route: 013
  2. LIPIODOL [Suspect]
     Active Substance: ETHIODIZED OIL
     Indication: THERAPEUTIC EMBOLISATION
     Route: 013

REACTIONS (4)
  - Monoplegia [Recovered/Resolved]
  - Cerebral artery embolism [Recovered/Resolved]
  - Apraxia [Recovered/Resolved]
  - Muscular weakness [Recovered/Resolved]
